FAERS Safety Report 15209366 (Version 1)
Quarter: 2018Q3

REPORT INFORMATION
  Report Type: Spontaneous
  Country: US (occurrence: US)
  Receive Date: 20180727
  Receipt Date: 20180727
  Transmission Date: 20181010
  Serious: Yes (Other)
  Sender: FDA-Public Use
  Company Number: US-ENDO PHARMACEUTICALS INC-2018-025967

PATIENT
  Sex: Male

DRUGS (10)
  1. PREDNISONE TABLETS [Suspect]
     Active Substance: PREDNISONE
     Indication: CROHN^S DISEASE
     Dosage: 320 MG, DAILY
     Dates: start: 201506, end: 201508
  2. VENLAFAXINE HCL TABLETS [Concomitant]
     Active Substance: VENLAFAXINE HYDROCHLORIDE
     Indication: DEPRESSION
     Dosage: 225 MG, DAILY
     Route: 048
     Dates: start: 2013
  3. CLONAZEPAM 2MG [Concomitant]
     Active Substance: CLONAZEPAM
     Indication: ANXIETY
     Dosage: 2 MG, AT NIGHT
     Route: 048
     Dates: start: 2013
  4. RHEUMATREX [Concomitant]
     Active Substance: METHOTREXATE SODIUM
     Indication: CROHN^S DISEASE
     Dosage: 2.5 MG TABLETS, 6 TABLETS ALL AT ONCE, ONE TIME A WEEK
     Route: 048
     Dates: start: 201502
  5. ATORVASTATIN [Concomitant]
     Active Substance: ATORVASTATIN
     Indication: BLOOD CHOLESTEROL INCREASED
     Dosage: 40 MG, DAILY
     Route: 048
     Dates: start: 2013
  6. LOSARTAN POTASSIUM TABLETS 100MG [Concomitant]
     Active Substance: LOSARTAN POTASSIUM
     Indication: BLOOD PRESSURE MEASUREMENT
     Dosage: 100 MG, DAILY
     Route: 048
     Dates: start: 2014
  7. CLONAZEPAM 2MG [Concomitant]
     Active Substance: CLONAZEPAM
     Indication: SLEEP DISORDER THERAPY
  8. FOLIC ACID TABLETS [Concomitant]
     Active Substance: FOLIC ACID
     Indication: CROHN^S DISEASE
     Dosage: 1 MG, DAILY
     Route: 048
     Dates: start: 2011
  9. XELJANZ [Concomitant]
     Active Substance: TOFACITINIB CITRATE
     Indication: CROHN^S DISEASE
     Dosage: 10 MG, BID
     Route: 048
     Dates: start: 201502
  10. CARVEDILOL. [Concomitant]
     Active Substance: CARVEDILOL
     Indication: BLOOD PRESSURE MEASUREMENT
     Dosage: 25 MG, BID
     Route: 048
     Dates: start: 2013

REACTIONS (1)
  - Diabetes mellitus [Unknown]
